FAERS Safety Report 11989843 (Version 1)
Quarter: 2016Q1

REPORT INFORMATION
  Report Type: Spontaneous
  Country: US (occurrence: US)
  Receive Date: 20160202
  Receipt Date: 20160202
  Transmission Date: 20160526
  Serious: No
  Sender: FDA-Public Use
  Company Number: US-ROCHE-1027319

PATIENT
  Sex: Male

DRUGS (4)
  1. PERCOCET [Concomitant]
     Active Substance: ACETAMINOPHEN\OXYCODONE HYDROCHLORIDE
  2. TORADOL [Concomitant]
     Active Substance: KETOROLAC TROMETHAMINE
  3. NUTROPIN AQ [Suspect]
     Active Substance: SOMATROPIN
     Dosage: 2.5 YEARS DURATION
     Route: 058
     Dates: start: 201210
  4. NUTROPIN AQ [Suspect]
     Active Substance: SOMATROPIN
     Indication: GROWTH HORMONE DEFICIENCY
     Route: 058
     Dates: start: 201110

REACTIONS (10)
  - Adverse drug reaction [Not Recovered/Not Resolved]
  - Injection site pain [Unknown]
  - Product quality issue [Unknown]
  - Medication error [Unknown]
  - Pain [Unknown]
  - Skin burning sensation [Unknown]
  - Incorrect product storage [Unknown]
  - Injection site reaction [Unknown]
  - Migraine [Unknown]
  - Drug ineffective [Unknown]
